FAERS Safety Report 5736858-3 (Version None)
Quarter: 2008Q2

REPORT INFORMATION
  Report Type: 
  Country: None (occurrence: None)
  Receive Date: 20080513
  Receipt Date: 20080513
  Transmission Date: 20081010
  Serious: Yes (Death)
  Sender: FDA-Public Use
  Company Number: ZA-ABBOTT-08P-143-0451542-00

PATIENT

DRUGS (3)
  1. FENOFIBRATE [Suspect]
     Indication: DYSLIPIDAEMIA
     Route: 048
     Dates: start: 20071024
  2. SIMVASTATIN [Concomitant]
     Indication: DYSLIPIDAEMIA
     Route: 048
     Dates: start: 20070101
  3. SIMVASTATIN [Concomitant]
     Route: 048
     Dates: start: 20071207

REACTIONS (1)
  - COMPLETED SUICIDE [None]
